FAERS Safety Report 17210401 (Version 1)
Quarter: 2019Q4

REPORT INFORMATION
  Report Type: Spontaneous
  Country: PT (occurrence: PT)
  Receive Date: 20191227
  Receipt Date: 20191227
  Transmission Date: 20200122
  Serious: Yes (Disabling)
  Sender: FDA-Public Use
  Company Number: PT-ELI_LILLY_AND_COMPANY-PT201912010691

PATIENT
  Age: 45 Year
  Sex: Female

DRUGS (3)
  1. TALTZ [Suspect]
     Active Substance: IXEKIZUMAB
     Dosage: 160MG WEEK 0, 80MG WEEKS 2,4,6,8,10,12 AND 80MG MONTHLY
     Route: 058
     Dates: start: 20190329, end: 20190726
  2. TALTZ [Suspect]
     Active Substance: IXEKIZUMAB
     Indication: PSORIASIS
     Dosage: 160MG WEEK 0, 80MG WEEKS 2,4,6,8,10,12 AND 80MG MONTHLY
     Route: 058
     Dates: start: 20190329, end: 20190726
  3. TALTZ [Suspect]
     Active Substance: IXEKIZUMAB
     Dosage: 160MG WEEK 0, 80MG WEEKS 2,4,6,8,10,12 AND 80MG MONTHLY
     Route: 058
     Dates: start: 20190329, end: 20190726

REACTIONS (1)
  - Pustular psoriasis [Unknown]
